FAERS Safety Report 15199115 (Version 1)
Quarter: 2018Q3

REPORT INFORMATION
  Report Type: Spontaneous
  Country: US (occurrence: US)
  Receive Date: 20180725
  Receipt Date: 20180725
  Transmission Date: 20181010
  Serious: No
  Sender: FDA-Public Use
  Company Number: US-GALDERMA-US18017737

PATIENT
  Age: 17 Year
  Sex: Female

DRUGS (6)
  1. ZANAFLEX [Concomitant]
     Active Substance: TIZANIDINE HYDROCHLORIDE
  2. CLAIRITIN D [Concomitant]
  3. PROACTIV MD DEEP CLEANSING FACE WASH [Concomitant]
     Active Substance: COSMETICS
     Indication: ACNE
     Route: 061
     Dates: start: 201709, end: 201711
  4. PROPANALOL [Concomitant]
  5. PROACTIV MD ADAPALENE ACNE TREATMENT [Suspect]
     Active Substance: ADAPALENE
     Indication: ACNE
     Dosage: 0.1%
     Route: 061
     Dates: start: 201709, end: 201711
  6. DIFLUCAN [Concomitant]
     Active Substance: FLUCONAZOLE

REACTIONS (4)
  - Rash [Recovered/Resolved]
  - Inappropriate schedule of drug administration [Recovered/Resolved]
  - Dry skin [Recovered/Resolved]
  - Underdose [Recovered/Resolved]

NARRATIVE: CASE EVENT DATE: 201709
